FAERS Safety Report 7431090-X (Version None)
Quarter: 2011Q2

REPORT INFORMATION
  Report Type: 
  Country: None (occurrence: None)
  Receive Date: 20110421
  Receipt Date: 20110411
  Transmission Date: 20111010
  Serious: Yes (Other)
  Sender: FDA-Public Use
  Company Number: DE-ELI_LILLY_AND_COMPANY-DE201104003075

PATIENT
  Sex: Female

DRUGS (6)
  1. FORTEO [Suspect]
     Indication: OSTEOPOROSIS
     Dosage: UNK
     Route: 058
     Dates: start: 20100110
  2. VITAMIN D [Concomitant]
  3. PREDNISOLONE [Concomitant]
  4. ANALGESICS [Concomitant]
     Indication: PAIN
  5. CALCIUM [Concomitant]
  6. CORTISONE [Concomitant]

REACTIONS (3)
  - SPINAL COMPRESSION FRACTURE [None]
  - LUMBAR VERTEBRAL FRACTURE [None]
  - BACK PAIN [None]
